FAERS Safety Report 4738510-X (Version None)
Quarter: 2005Q3

REPORT INFORMATION
  Report Type: 
  Country: None (occurrence: None)
  Receive Date: 20050803
  Receipt Date: 20050718
  Transmission Date: 20060218
  Serious: Yes (Other)
  Sender: FDA-Public Use
  Company Number: AU-2005-014870

PATIENT
  Age: 69 Year
  Sex: Female

DRUGS (2)
  1. CAMPATH [Suspect]
     Indication: MYCOSIS FUNGOIDES
     Dosage: SEE IMAGE, INTRAVENOUS
     Route: 042
  2. ANTIBIOTICS [Concomitant]

REACTIONS (7)
  - BONE MARROW DEPRESSION [None]
  - CYTOMEGALOVIRUS INFECTION [None]
  - DISEASE RECURRENCE [None]
  - MYELODYSPLASTIC SYNDROME [None]
  - NEUTROPENIA [None]
  - PARVOVIRUS INFECTION [None]
  - THROMBOCYTOPENIA [None]
